FAERS Safety Report 7336012-8 (Version None)
Quarter: 2011Q1

REPORT INFORMATION
  Report Type: 
  Country: None (occurrence: None)
  Receive Date: 20110228
  Receipt Date: 20110218
  Transmission Date: 20110831
  Serious: Yes (Other)
  Sender: FDA-Public Use
  Company Number: DKLU1067526

PATIENT
  Age: 35 Year
  Sex: Male

DRUGS (8)
  1. TEGRETOL [Concomitant]
  2. LORAZEPAM [Concomitant]
  3. SABRIL [Suspect]
     Indication: INFANTILE SPASMS
     Dosage: 500 MG MILLIGRAMS, 2 IN 1 D,  4 IN 1 DAY,ORAL
     Route: 048
     Dates: start: 20110104, end: 20110222
  4. SABRIL [Suspect]
     Indication: INFANTILE SPASMS
     Dosage: 500 MG MILLIGRAMS, 2 IN 1 D,  4 IN 1 DAY,ORAL
     Route: 048
     Dates: start: 20101229, end: 20110103
  5. VIMPAT (LOCASAMIDE) [Concomitant]
  6. DILANTIN [Concomitant]
  7. FELBATOL [Concomitant]
  8. LYRICA [Concomitant]

REACTIONS (3)
  - EYE MOVEMENT DISORDER [None]
  - BRADYPHRENIA [None]
  - DRUG INEFFECTIVE [None]
